FAERS Safety Report 11751965 (Version 1)
Quarter: 2015Q4

REPORT INFORMATION
  Report Type: Spontaneous
  Country: US (occurrence: US)
  Receive Date: 20151118
  Receipt Date: 20151118
  Transmission Date: 20160304
  Serious: Yes (Hospitalization, Other)
  Sender: FDA-Public Use
  Company Number: US-INCYTE CORPORATION-2015IN004775

PATIENT
  Age: 92 Year
  Sex: Female
  Weight: 53.1 kg

DRUGS (13)
  1. CALCIUM CARBONATE AND VITAMIN D [Concomitant]
     Dosage: 500 MG/125 UNIT TABLET; 1 TAB TWICE DAILY
     Route: 048
  2. METOPROLOL [Concomitant]
     Active Substance: METOPROLOL
     Dosage: 100 MG, QD
     Route: 048
  3. PROPYLENE GLYCOL [Concomitant]
     Active Substance: PROPYLENE GLYCOL
     Route: 047
  4. LOSARTAN. [Concomitant]
     Active Substance: LOSARTAN
     Dosage: 25 MG, QD
     Route: 048
  5. WARFARIN [Concomitant]
     Active Substance: WARFARIN
     Dosage: 3 MG EVERY MONDAY AND 2 MG DAILY
     Route: 048
  6. JAKAFI [Suspect]
     Active Substance: RUXOLITINIB
     Indication: MYELOFIBROSIS
     Dosage: 15 MG, BID
     Route: 048
     Dates: start: 20150729, end: 20150918
  7. JAKAFI [Suspect]
     Active Substance: RUXOLITINIB
     Dosage: 5 MG, BID
     Route: 048
     Dates: start: 20150928
  8. ATORVASTATIN CALCIUM. [Concomitant]
     Active Substance: ATORVASTATIN CALCIUM
     Route: 048
  9. CHOLECALCIFEROL [Concomitant]
     Active Substance: CHOLECALCIFEROL
     Dosage: 2000 UNITS DAILY
     Route: 048
  10. TORASEMIDE [Concomitant]
     Active Substance: TORSEMIDE
     Dosage: 10 MG
     Route: 048
  11. ALLOPURINOL. [Concomitant]
     Active Substance: ALLOPURINOL
     Dosage: 300 MG AT BEDTIME DAILY
     Route: 048
  12. LEVOTHYROXINE. [Concomitant]
     Active Substance: LEVOTHYROXINE
     Dosage: 88 MCG, QD
     Route: 048
  13. LUTEIN                             /01638501/ [Concomitant]
     Active Substance: LUTEIN
     Dosage: 6 MG
     Route: 048

REACTIONS (7)
  - Bone marrow failure [Recovered/Resolved]
  - Basal cell carcinoma [Unknown]
  - Anaemia [Recovered/Resolved]
  - White blood cell count decreased [Recovered/Resolved]
  - Tenderness [Unknown]
  - Drug dose omission [Unknown]
  - Platelet count decreased [Recovered/Resolved]

NARRATIVE: CASE EVENT DATE: 2015
